FAERS Safety Report 20744416 (Version 4)
Quarter: 2022Q2

REPORT INFORMATION
  Report Type: Report from Study
  Country: None (occurrence: CA)
  Receive Date: 20220425
  Receipt Date: 20220512
  Transmission Date: 20220721
  Serious: Yes (Hospitalization, Other)
  Sender: FDA-Public Use
  Company Number: CA-AKCEA THERAPEUTICS, INC.-2021IS001828

PATIENT
  Age: 52 Year
  Sex: Male

DRUGS (16)
  1. TEGSEDI [Suspect]
     Active Substance: INOTERSEN SODIUM
     Indication: Hereditary neuropathic amyloidosis
     Route: 058
     Dates: start: 20190318, end: 20220407
  2. DEVICE [Suspect]
     Active Substance: DEVICE
  3. DIFLUNISAL [Concomitant]
     Active Substance: DIFLUNISAL
     Route: 065
  4. ERGOCALCIFEROL [Concomitant]
     Active Substance: ERGOCALCIFEROL
     Route: 065
  5. CALCIUM CARBONATE [Concomitant]
     Active Substance: CALCIUM CARBONATE
     Route: 065
  6. MAGNESIUM OXIDE [Concomitant]
     Active Substance: MAGNESIUM OXIDE
     Route: 065
  7. RAMIPRIL [Concomitant]
     Active Substance: RAMIPRIL
     Route: 065
  8. ASPIRIN [Concomitant]
     Active Substance: ASPIRIN
     Route: 065
  9. PANTOPRAZOLE SODIUM [Concomitant]
     Active Substance: PANTOPRAZOLE SODIUM
     Route: 065
  10. LIPITOR [Concomitant]
     Active Substance: ATORVASTATIN CALCIUM
     Route: 065
  11. SIROLIMUS [Concomitant]
     Active Substance: SIROLIMUS
     Route: 065
  12. MYFORTIC [Concomitant]
     Active Substance: MYCOPHENOLATE SODIUM
     Route: 065
  13. PROGRAF [Concomitant]
     Active Substance: TACROLIMUS
     Route: 065
  14. TACROLIMUS [Concomitant]
     Active Substance: TACROLIMUS
     Route: 065
  15. ZOPICLONE [Concomitant]
     Active Substance: ZOPICLONE
     Route: 065
  16. DOXYCYCLINE [Concomitant]
     Active Substance: DOXYCYCLINE
     Route: 065

REACTIONS (46)
  - Diarrhoea [Not Recovered/Not Resolved]
  - Vomiting [Not Recovered/Not Resolved]
  - Creatinine urine increased [Recovered/Resolved]
  - Blood calcium decreased [Not Recovered/Not Resolved]
  - Rhinorrhoea [Recovering/Resolving]
  - Malaise [Recovering/Resolving]
  - Oxygen saturation abnormal [Recovering/Resolving]
  - COVID-19 [Recovered/Resolved]
  - Lymphocyte count decreased [Recovered/Resolved]
  - Cough [Recovering/Resolving]
  - Urine protein/creatinine ratio decreased [Recovered/Resolved]
  - Fatigue [Recovering/Resolving]
  - Protein urine present [Recovered/Resolved]
  - Glomerular filtration rate decreased [Unknown]
  - Platelet count decreased [Unknown]
  - Blood creatinine increased [Unknown]
  - Blood magnesium decreased [Not Recovered/Not Resolved]
  - Blood albumin decreased [Unknown]
  - White blood cell count decreased [Not Recovered/Not Resolved]
  - Neutrophil count decreased [Not Recovered/Not Resolved]
  - Glycosylated haemoglobin increased [Unknown]
  - Blood lactate dehydrogenase increased [Unknown]
  - Blood chloride decreased [Recovered/Resolved]
  - High density lipoprotein decreased [Unknown]
  - Blood urea increased [Unknown]
  - Aspartate aminotransferase increased [Recovered/Resolved]
  - Mean cell haemoglobin decreased [Not Recovered/Not Resolved]
  - Blood magnesium increased [Recovered/Resolved]
  - Reticulocyte count decreased [Unknown]
  - Platelet disorder [Unknown]
  - Red blood cell elliptocytes present [Unknown]
  - Haematocrit decreased [Unknown]
  - Red blood cell burr cells present [Unknown]
  - Haemoglobin decreased [Unknown]
  - Urine albumin/creatinine ratio increased [Unknown]
  - Urine protein/creatinine ratio increased [Unknown]
  - Nucleated red cells [Recovered/Resolved]
  - Blood cholesterol decreased [Unknown]
  - Immature granulocyte count increased [Recovered/Resolved]
  - Red blood cell count decreased [Not Recovered/Not Resolved]
  - Neutrophil count increased [Recovered/Resolved]
  - White blood cell count increased [Recovered/Resolved]
  - Mean cell haemoglobin concentration decreased [Unknown]
  - Blood potassium increased [Unknown]
  - Blood chloride increased [Unknown]
  - Blood magnesium decreased [Unknown]

NARRATIVE: CASE EVENT DATE: 20211020
